FAERS Safety Report 5495084-6 (Version None)
Quarter: 2007Q4

REPORT INFORMATION
  Report Type: 
  Country: None (occurrence: None)
  Receive Date: 20071024
  Receipt Date: 20071012
  Transmission Date: 20080405
  Serious: Yes (Hospitalization)
  Sender: FDA-Public Use
  Company Number: US-GENENTECH-249325

PATIENT
  Age: 76 Year
  Sex: Female
  Weight: 60.9 kg

DRUGS (1)
  1. AVASTIN [Suspect]
     Indication: MACULAR DEGENERATION

REACTIONS (1)
  - CONFUSIONAL STATE [None]
